FAERS Safety Report 8960256 (Version 1)
Quarter: 2012Q4

REPORT INFORMATION
  Report Type: 
  Country: IT (occurrence: IT)
  Receive Date: 20121212
  Receipt Date: 20121212
  Transmission Date: 20130627
  Serious: Yes (Hospitalization, Other)
  Sender: FDA-Public Use
  Company Number: IT-PFIZER INC-2012309161

PATIENT
  Age: 91 Year
  Sex: Female

DRUGS (7)
  1. SERTRALINE HCL [Suspect]
     Indication: DEPRESSION
     Dosage: 50 mg, total dose
     Route: 048
     Dates: start: 20121204, end: 20121204
  2. MINIAS [Suspect]
     Indication: DEPRESSION
     Dosage: 25 Gtt, daily
     Route: 048
     Dates: start: 20121013, end: 20121204
  3. LASIX [Concomitant]
     Dosage: 25 mg, UNK
     Dates: start: 20121013, end: 20121204
  4. VENITRIN [Concomitant]
     Dosage: 10mg/24h
     Dates: start: 20121013, end: 20121204
  5. GLUCOBAY [Concomitant]
     Dosage: 50 mg, UNK
     Dates: start: 20121013, end: 20121204
  6. CARDIOASPIRIN [Concomitant]
     Dosage: 100 mg, UNK
     Dates: start: 20121013, end: 20121204
  7. LANSOPRAZOLE [Concomitant]
     Dosage: UNK
     Dates: start: 20121013, end: 20121204

REACTIONS (4)
  - Sopor [Recovering/Resolving]
  - Psychomotor retardation [Recovering/Resolving]
  - Toxicity to various agents [Recovering/Resolving]
  - Bronchopneumonia [Unknown]
